FAERS Safety Report 8886086 (Version 1)
Quarter: 2012Q4

REPORT INFORMATION
  Report Type: 
  Country: BR (occurrence: BR)
  Receive Date: 20121105
  Receipt Date: 20121105
  Transmission Date: 20130627
  Serious: Yes (Other)
  Sender: FDA-Public Use
  Company Number: BR-AMGEN-BRASP2012069905

PATIENT
  Age: 57 Year
  Sex: Female
  Weight: 75 kg

DRUGS (6)
  1. ENBREL [Suspect]
     Indication: RHEUMATOID ARTHRITIS
     Dosage: 50 mg, once weekly
     Route: 058
  2. TEOLONG [Concomitant]
     Dosage: 2 tablets (200 mg each), 2x/day
     Route: 048
  3. FUROSEMIDE [Concomitant]
     Dosage: 1 tablet (40 mg), 1x/day
     Route: 048
  4. SIMVASTATIN [Concomitant]
     Dosage: 1 tablet (10 mg), 1x/day
     Route: 048
  5. LOSARTAN [Concomitant]
     Dosage: 1 tablet (50 mg), 1x/day
     Route: 048
  6. SYNTHROID [Concomitant]
     Dosage: 1 tablet (88 ug), 1x/day
     Route: 048

REACTIONS (2)
  - Lung disorder [Unknown]
  - Injection site pain [Unknown]
